FAERS Safety Report 6127254-8 (Version None)
Quarter: 2009Q1

REPORT INFORMATION
  Report Type: 
  Country: None (occurrence: None)
  Receive Date: 20090319
  Receipt Date: 20090305
  Transmission Date: 20090719
  Serious: Yes (Hospitalization)
  Sender: FDA-Public Use
  Company Number: 02100-JPN-07-0070

PATIENT
  Age: 75 Year
  Sex: Female

DRUGS (23)
  1. PLETAL [Suspect]
     Indication: CEREBROVASCULAR ACCIDENT
     Dosage: 100 MG, BID
     Route: 048
     Dates: start: 20070122, end: 20070202
  2. ASPIRIN [Concomitant]
  3. ATORVASTATIN CALCIUM [Concomitant]
  4. CILOSTAZOL [Concomitant]
  5. ALMITRINE BISMESILATE (ALMITRINE BISMESILATE) [Concomitant]
  6. RAUBASINE (RAUBASINE) [Concomitant]
  7. DOMPERIDONE (DOMPERIDONE) [Concomitant]
  8. MAGNESIUM OXIDE (MAGNESIUM OXIDE) [Concomitant]
  9. ACETAMINOPHEN [Concomitant]
  10. DIHYDROCODEINE BITARTRATE INJ [Concomitant]
  11. DL-METHYLEPHEDRINE HYDROCHLORIDE (DL-METHYLEPHEDRINE HYDROCHLORIDE) [Concomitant]
  12. CHLORPHENIRAMINE (CHLORPHENAMINE MALEATE) [Concomitant]
  13. AMMONIUM CHLORIDE (AMMONIUM CHLORIDE) [Concomitant]
  14. AMINO ACID SOLUTION 10% (AMINO ACID SOLUTION 10%) [Concomitant]
  15. AMINO ACID SOLUTION 8.5% (AMINO ACID SOLUTION 8.5%) [Concomitant]
  16. LOSARTAN POTASSIUM [Concomitant]
  17. THIAMINE HCL [Concomitant]
  18. RIBOFLAVIN SODIUM PHOSPHATE (RIBOFLAVIN SODIUM PHOSPHATE) [Concomitant]
  19. BIOTIN (BIOTIN) [Concomitant]
  20. CYANOCOBALAMIN [Concomitant]
  21. DEXPANTHENOL (DEXPANTHENOL) [Concomitant]
  22. NICOTINAMIDE [Concomitant]
  23. PYRIDOXINE HYDROCHLORIDE (PYRIDOXINE HYDROCHLORIDE) [Concomitant]

REACTIONS (1)
  - BRAIN STEM INFARCTION [None]
